FAERS Safety Report 7876314-X (Version None)
Quarter: 2011Q4

REPORT INFORMATION
  Report Type: 
  Country: None (occurrence: None)
  Receive Date: 20111031
  Receipt Date: 20111026
  Transmission Date: 20120403
  Serious: Yes (Hospitalization, Other)
  Sender: FDA-Public Use
  Company Number: AU-MERCK-1109USA00417

PATIENT
  Age: 64 Year
  Sex: Female

DRUGS (15)
  1. PLAQUENIL [Concomitant]
     Route: 065
  2. CARDIZEM CD [Concomitant]
     Route: 065
  3. ATACAND [Concomitant]
     Route: 065
     Dates: end: 20110101
  4. SODIBIC [Concomitant]
     Route: 065
  5. OSTEVIT D [Concomitant]
     Route: 065
  6. CRESTOR [Concomitant]
     Route: 065
  7. ARANESP [Concomitant]
     Route: 065
     Dates: end: 20110101
  8. FOLIC ACID [Concomitant]
     Route: 065
  9. PANAFCORT [Concomitant]
     Route: 065
     Dates: end: 20110101
  10. PLAQUENIL [Concomitant]
     Route: 065
  11. FOSAMAX [Suspect]
     Route: 048
  12. OSTEVIT D [Concomitant]
     Route: 065
  13. FOLIC ACID [Concomitant]
     Route: 065
  14. PANADOL OSTEO [Concomitant]
     Route: 065
  15. RABEPRAZOLE SODIUM [Concomitant]
     Route: 065

REACTIONS (17)
  - FEMUR FRACTURE [None]
  - IRON DEFICIENCY [None]
  - HIP FRACTURE [None]
  - FALL [None]
  - RENAL CYST [None]
  - AORTIC ARTERIOSCLEROSIS [None]
  - STRESS FRACTURE [None]
  - RENAL FAILURE CHRONIC [None]
  - GOITRE [None]
  - BLOOD PRESSURE INADEQUATELY CONTROLLED [None]
  - IGA NEPHROPATHY [None]
  - OSTEOPOROSIS [None]
  - RHEUMATOID ARTHRITIS [None]
  - ABDOMINAL HERNIA [None]
  - HYPERCHOLESTEROLAEMIA [None]
  - GOUT [None]
  - HYPERTONIC BLADDER [None]
